FAERS Safety Report 8601215 (Version 3)
Quarter: 2012Q4

REPORT INFORMATION
  Report Type: 
  Country: US (occurrence: US)
  Receive Date: 20120606
  Receipt Date: 20120911
  Transmission Date: 20130627
  Serious: No
  Sender: FDA-Public Use
  Company Number: PHEH2012US011403

PATIENT
  Age: 42 Year
  Sex: Female
  Weight: 103.86 kg

DRUGS (12)
  1. GILENYA [Suspect]
     Indication: MULTIPLE SCLEROSIS
     Dosage: 0.5 mg, QD
     Route: 048
     Dates: start: 20120501, end: 20120717
  2. GILENYA [Suspect]
     Dosage: 0.5 mg, QOD
     Route: 048
  3. DIOVAN [Concomitant]
  4. METFORMIN [Concomitant]
  5. JANUVIA [Concomitant]
  6. NAMENDA [Concomitant]
  7. OXYBUTYNIN [Concomitant]
  8. TRICOR [Concomitant]
  9. SEROQUEL [Concomitant]
  10. NEURONTIN [Concomitant]
  11. VITAMIN D [Concomitant]
  12. CELEBREX [Concomitant]

REACTIONS (12)
  - Dry skin [Unknown]
  - Balance disorder [Unknown]
  - Tachycardia [Unknown]
  - Decreased appetite [Unknown]
  - Gait disturbance [Unknown]
  - Urticaria [Unknown]
  - Vaginal infection [Unknown]
  - Vulvovaginal pruritus [Unknown]
  - Vision blurred [Unknown]
  - Alopecia [Not Recovered/Not Resolved]
  - Back pain [Not Recovered/Not Resolved]
  - Inappropriate schedule of drug administration [Unknown]
